FAERS Safety Report 23598876 (Version 1)
Quarter: 2024Q1

REPORT INFORMATION
  Report Type: Spontaneous
  Country: US (occurrence: US)
  Receive Date: 20240306
  Receipt Date: 20240306
  Transmission Date: 20240410
  Serious: No
  Sender: FDA-Public Use
  Company Number: US-STRIDES ARCOLAB LIMITED-2023SP018434

PATIENT
  Age: 3 Decade

DRUGS (13)
  1. GABAPENTIN [Suspect]
     Active Substance: GABAPENTIN
     Indication: Neuralgia
     Dosage: UNK
     Route: 065
  2. PREDNISOLONE [Suspect]
     Active Substance: PREDNISOLONE
     Indication: Neuralgia
     Dosage: UNK
     Route: 065
  3. OXYCODONE [Suspect]
     Active Substance: OXYCODONE\OXYCODONE HYDROCHLORIDE
     Indication: Neuralgia
     Dosage: UNK, AT BED TIME
     Route: 065
  4. OXYCODONE [Suspect]
     Active Substance: OXYCODONE\OXYCODONE HYDROCHLORIDE
     Indication: Sleep disorder
     Dosage: UNK
     Route: 065
  5. OXYCODONE [Suspect]
     Active Substance: OXYCODONE\OXYCODONE HYDROCHLORIDE
     Dosage: UNK
     Route: 065
  6. OXCARBAZEPINE [Suspect]
     Active Substance: OXCARBAZEPINE
     Indication: Neuralgia
     Dosage: UNK
     Route: 065
  7. CARBAMAZEPINE [Suspect]
     Active Substance: CARBAMAZEPINE
     Indication: Neuralgia
     Dosage: UNK
     Route: 065
  8. NORTRIPTYLINE [Suspect]
     Active Substance: NORTRIPTYLINE
     Indication: Neuralgia
     Dosage: UNK
     Route: 065
  9. BOTOX [Concomitant]
     Active Substance: ONABOTULINUMTOXINA
     Indication: Neuralgia
     Dosage: UNK
     Route: 065
  10. TORADOL [Concomitant]
     Active Substance: KETOROLAC TROMETHAMINE
     Indication: Neuralgia
     Dosage: UNK
     Route: 065
  11. KETAMINE [Concomitant]
     Active Substance: KETAMINE
     Indication: Neuralgia
     Dosage: UNK, (5-10MG THREE TIMES A DAY AS NEEDED)
     Route: 048
     Dates: start: 202207
  12. KETAMINE [Concomitant]
     Active Substance: KETAMINE
     Dosage: UNK, (5-10MG FEW TIMES PER WEEK AND UP TO TWO DOSES PER DAY AS NEEDED)
     Route: 048
  13. TRIAMCINOLONE [Concomitant]
     Active Substance: TRIAMCINOLONE
     Indication: Neuralgia
     Dosage: UNK
     Route: 065

REACTIONS (4)
  - Disorientation [Unknown]
  - Affective disorder [Unknown]
  - Somnolence [Unknown]
  - Off label use [Unknown]
